FAERS Safety Report 7550407-9 (Version None)
Quarter: 2011Q2

REPORT INFORMATION
  Report Type: 
  Country: None (occurrence: None)
  Receive Date: 20110615
  Receipt Date: 20110603
  Transmission Date: 20111010
  Serious: Yes (Hospitalization, Disabling, Other)
  Sender: FDA-Public Use
  Company Number: DE-UCBSA-033802

PATIENT
  Sex: Male
  Weight: 90 kg

DRUGS (4)
  1. CORTISOL [Concomitant]
     Indication: CSF PRESSURE
  2. TEMOZOLOMIDE [Suspect]
     Indication: ASTROCYTOMA
     Route: 048
     Dates: start: 20110214, end: 20110401
  3. KEPPRA [Suspect]
     Dosage: DOSE REDUCTION
     Route: 048
     Dates: start: 20110101
  4. KEPPRA [Suspect]
     Indication: EPILEPSY
     Route: 048
     Dates: start: 20110101, end: 20110101

REACTIONS (1)
  - RENAL FAILURE ACUTE [None]
